FAERS Safety Report 4398167-7 (Version None)
Quarter: 2004Q3

REPORT INFORMATION
  Report Type: 
  Country: None (occurrence: None)
  Receive Date: 20040714
  Receipt Date: 20040714
  Transmission Date: 20050211
  Serious: Yes (Life-Threatening, Hospitalization)
  Sender: FDA-Public Use
  Company Number: None

PATIENT
  Age: 83 Year
  Sex: Female
  Weight: 57.4254 kg

DRUGS (3)
  1. HYDROCHLOROTHIAZIDE [Suspect]
     Indication: HYPERTENSION
     Dosage: 25 MG PO QD/ AROUND 2 WEEKS
     Route: 048
  2. ZESTRIL [Concomitant]
  3. TOPROL-XL [Concomitant]

REACTIONS (2)
  - DIZZINESS [None]
  - HYPONATRAEMIA [None]
